FAERS Safety Report 4883034-2 (Version None)
Quarter: 2006Q1

REPORT INFORMATION
  Report Type: 
  Country: None (occurrence: None)
  Receive Date: 20060113
  Receipt Date: 20051229
  Transmission Date: 20060701
  Serious: Yes (Other)
  Sender: FDA-Public Use
  Company Number: FR200512004424

PATIENT
  Age: 76 Year
  Sex: Female

DRUGS (7)
  1. FORTEO [Suspect]
     Indication: OSTEOPOROSIS
     Dosage: 20 UG, DAILY (1/D), SUBCUTANEOUS
     Route: 058
     Dates: start: 20051204
  2. INSULATARID (INSULIN HUMAN INJECTION, ISOPHANE) [Concomitant]
  3. ACTRAPID HUMAN (INSULIN HUMAN) [Concomitant]
  4. CREON [Concomitant]
  5. FORTEO PEN (FORTEO PEN) PEN DISPOSABLE [Concomitant]
  6. TARDYFERON /GFR/ (FERROUS SULFATE) [Concomitant]
  7. DAFALGAN /FRA/(PARACETAMOL) [Concomitant]

REACTIONS (3)
  - HYPOGLYCAEMIA [None]
  - MICTURITION URGENCY [None]
  - URINE ODOUR ABNORMAL [None]
